FAERS Safety Report 9022018 (Version 2)
Quarter: 2013Q1

REPORT INFORMATION
  Report Type: Report from Study
  Country: DE (occurrence: DE)
  Receive Date: 20130118
  Receipt Date: 20130129
  Transmission Date: 20140127
  Serious: Yes (Hospitalization, Other)
  Sender: FDA-Public Use
  Company Number: DE-PFIZER INC-2013022392

PATIENT
  Age: 61 Year
  Sex: Female

DRUGS (16)
  1. SUNITINIB MALATE [Suspect]
     Indication: RENAL CELL CARCINOMA
     Dosage: UNK
     Dates: start: 20120921
  2. SUNITINIB MALATE [Suspect]
     Dosage: UNK
     Dates: start: 20121017, end: 20121130
  3. CYCLOPHOSPHAMIDE [Suspect]
     Indication: RENAL CELL CARCINOMA
     Dosage: UNK
     Dates: start: 20121022
  4. IMA901 [Suspect]
     Indication: RENAL CELL CARCINOMA
     Dosage: UNK
     Dates: start: 20121024
  5. G-CSF [Suspect]
     Indication: RENAL CELL CARCINOMA
     Dosage: UNK
     Dates: start: 20121024
  6. TRAMAL [Concomitant]
     Indication: PAIN
     Dosage: UNK
     Dates: start: 20120820, end: 20120910
  7. TRAMAL [Concomitant]
     Dosage: UNK
     Dates: start: 20120910, end: 20121022
  8. TRAMAL [Concomitant]
     Dosage: UNK
     Dates: start: 20121101
  9. CEFTRIAXON [Concomitant]
     Indication: PYREXIA
     Dosage: UNK
     Dates: start: 20120818, end: 20120820
  10. CALCIVIT [Concomitant]
     Indication: OSTEOPOROSIS
     Dosage: UNK
     Dates: start: 20120910
  11. ALENDRON BETA [Concomitant]
     Indication: OSTEOPOROSIS
     Dosage: UNK
     Dates: start: 20120910
  12. ARCOXIA [Concomitant]
     Indication: ARTHROPATHY
     Dosage: UNK
     Dates: start: 20120910, end: 20121001
  13. ARCOXIA [Concomitant]
     Dosage: UNK
     Dates: start: 20121021
  14. PANTOPRAZOL [Concomitant]
     Indication: GASTRITIS
     Dosage: UNK
     Dates: start: 20120910
  15. DIPROGENTA [Concomitant]
     Indication: SKIN EXFOLIATION
     Dosage: UNK
     Dates: start: 20121211
  16. BETAISODONA [Concomitant]
     Indication: SKIN EXFOLIATION
     Dosage: UNK
     Dates: start: 20121211

REACTIONS (1)
  - Pyoderma gangrenosum [Unknown]
